FAERS Safety Report 19135755 (Version 1)
Quarter: 2021Q2

REPORT INFORMATION
  Report Type: Spontaneous
  Country: PT (occurrence: PT)
  Receive Date: 20210414
  Receipt Date: 20210414
  Transmission Date: 20210717
  Serious: Yes (Hospitalization, Other)
  Sender: FDA-Public Use
  Company Number: PT-MYLANLABS-2021M1021962

PATIENT
  Age: 66 Year
  Sex: Female

DRUGS (7)
  1. VANCOMYCIN [Suspect]
     Active Substance: VANCOMYCIN
     Indication: ANTIBIOTIC THERAPY
     Route: 065
  2. ERTAPENEM. [Suspect]
     Active Substance: ERTAPENEM SODIUM
     Indication: ANTIBIOTIC THERAPY
     Route: 065
  3. AMPHOTERICIN B. [Concomitant]
     Active Substance: AMPHOTERICIN B
     Indication: INTERVERTEBRAL DISCITIS
     Route: 065
  4. PIPERACILLIN/TAZOBACTAM [Suspect]
     Active Substance: PIPERACILLIN SODIUM\TAZOBACTAM SODIUM
     Indication: ANTIBIOTIC THERAPY
     Route: 065
  5. MEROPENEM. [Suspect]
     Active Substance: MEROPENEM
     Indication: ANTIBIOTIC THERAPY
     Route: 065
  6. AMPHOTERICIN B. [Concomitant]
     Active Substance: AMPHOTERICIN B
     Indication: CANDIDA INFECTION
  7. CEFTRIAXONE. [Suspect]
     Active Substance: CEFTRIAXONE
     Indication: ANTIBIOTIC THERAPY
     Route: 065

REACTIONS (4)
  - Nervous system disorder [Recovered/Resolved]
  - Paraparesis [Recovered/Resolved]
  - Candida infection [Recovered/Resolved]
  - Intervertebral discitis [Recovered/Resolved]
